FAERS Safety Report 15606992 (Version 1)
Quarter: 2018Q4

REPORT INFORMATION
  Report Type: Spontaneous
  Country: US (occurrence: US)
  Receive Date: 20181106
  Receipt Date: 20181106
  Transmission Date: 20190205
  Serious: No
  Sender: FDA-Public Use
  Company Number: None

PATIENT
  Age: 43 Year
  Sex: Female

DRUGS (2)
  1. TECFIDERA [Concomitant]
     Active Substance: DIMETHYL FUMARATE
  2. AIMOVIG [Suspect]
     Active Substance: ERENUMAB-AOOE
     Indication: MIGRAINE
     Route: 058
     Dates: start: 20161026

REACTIONS (4)
  - Injection site discolouration [None]
  - Injection site pain [None]
  - Injection site extravasation [None]
  - Device issue [None]

NARRATIVE: CASE EVENT DATE: 20181026
